FAERS Safety Report 13074223 (Version 1)
Quarter: 2016Q4

REPORT INFORMATION
  Report Type: Spontaneous
  Country: GB (occurrence: GB)
  Receive Date: 20161230
  Receipt Date: 20161230
  Transmission Date: 20170207
  Serious: Yes (Hospitalization)
  Sender: FDA-Public Use
  Company Number: GB-AMGEN-GBRSP2016184018

PATIENT
  Age: 84 Year
  Sex: Female

DRUGS (2)
  1. SULFASALAZINE. [Concomitant]
     Active Substance: SULFASALAZINE
     Dosage: UNK
  2. ENBREL [Suspect]
     Active Substance: ETANERCEPT
     Indication: PRODUCT USED FOR UNKNOWN INDICATION
     Dosage: 50 MG, WEEKLY
     Route: 058
     Dates: start: 20161121

REACTIONS (3)
  - Rash [Unknown]
  - Dyspnoea [Unknown]
  - Eyelid oedema [Unknown]
